FAERS Safety Report 7126035-6 (Version None)
Quarter: 2010Q4

REPORT INFORMATION
  Report Type: 
  Country: None (occurrence: None)
  Receive Date: 20101129
  Receipt Date: 20101119
  Transmission Date: 20110411
  Serious: Yes (Hospitalization, Other)
  Sender: FDA-Public Use
  Company Number: DE-JNJFOC-20101101934

PATIENT
  Age: 72 Year
  Sex: Male
  Weight: 58 kg

DRUGS (8)
  1. HALDOL [Suspect]
     Indication: PRODUCT USED FOR UNKNOWN INDICATION
     Route: 048
     Dates: start: 20100330, end: 20100412
  2. HALDOL [Suspect]
     Route: 048
     Dates: start: 20100330, end: 20100412
  3. HALDOL [Suspect]
     Route: 048
     Dates: start: 20100330, end: 20100412
  4. HALDOL [Suspect]
     Route: 048
     Dates: start: 20100330, end: 20100412
  5. AKINETON [Suspect]
     Indication: ALCOHOL WITHDRAWAL SYNDROME
     Route: 042
     Dates: start: 20100412
  6. DIAZEPAM [Suspect]
     Indication: PRODUCT USED FOR UNKNOWN INDICATION
     Route: 048
     Dates: start: 20100330, end: 20100412
  7. DIAZEPAM [Suspect]
     Route: 048
     Dates: start: 20100330, end: 20100412
  8. DIAZEPAM [Suspect]
     Route: 048
     Dates: start: 20100330, end: 20100412

REACTIONS (2)
  - COMA [None]
  - PARKINSONISM [None]
